FAERS Safety Report 25899246 (Version 1)
Quarter: 2025Q4

REPORT INFORMATION
  Report Type: Spontaneous
  Country: TH (occurrence: TH)
  Receive Date: 20251009
  Receipt Date: 20251009
  Transmission Date: 20260118
  Serious: Yes (Hospitalization, Other)
  Sender: MERCK SHARP & DOHME LLC
  Company Number: TH-009507513-2334051

PATIENT
  Age: 61 Year
  Sex: Female

DRUGS (2)
  1. KEYTRUDA [Suspect]
     Active Substance: PEMBROLIZUMAB
     Indication: Breast cancer recurrent
     Route: 065
     Dates: start: 20250130
  2. PACLITAXEL [Suspect]
     Active Substance: PACLITAXEL
     Indication: Breast cancer recurrent
     Dates: start: 20250130

REACTIONS (7)
  - Neutropenia [Unknown]
  - Pyrexia [Unknown]
  - Dysuria [Unknown]
  - Abdominal pain upper [Unknown]
  - Immune-mediated hypophysitis [Unknown]
  - Drug-induced liver injury [Unknown]
  - Therapy partial responder [Unknown]

NARRATIVE: CASE EVENT DATE: 20250101
